FAERS Safety Report 5792876-0 (Version None)
Quarter: 2008Q2

REPORT INFORMATION
  Report Type: 
  Country: None (occurrence: None)
  Receive Date: 20080627
  Receipt Date: 20080618
  Transmission Date: 20081010
  Serious: Yes (Death, Life-Threatening, Hospitalization)
  Sender: FDA-Public Use
  Company Number: FR-BRISTOL-MYERS SQUIBB COMPANY-14148217

PATIENT
  Age: 47 Year
  Sex: Female

DRUGS (3)
  1. IFOSFAMIDE [Suspect]
     Indication: OVARIAN CANCER
     Dosage: THERAPY DATES: 13FEB08,11MAR08,02APR08
     Route: 042
     Dates: start: 20080402, end: 20080402
  2. VEPESID [Concomitant]
     Dosage: THERAPY DATES:11MAR08-13MAR08;13FEB08-15FEB08
     Route: 042
     Dates: start: 20080402, end: 20080404
  3. UROMITEXAN [Concomitant]
     Dosage: THERAPY DATES:11MAR08-12MAR08;13FEB08-14FEB08
     Route: 042
     Dates: start: 20080402, end: 20080403

REACTIONS (2)
  - ENCEPHALOPATHY [None]
  - MALIGNANT NEOPLASM PROGRESSION [None]
